FAERS Safety Report 5803504-X (Version None)
Quarter: 2008Q3

REPORT INFORMATION
  Report Type: 
  Country: None (occurrence: None)
  Receive Date: 20080708
  Receipt Date: 20080702
  Transmission Date: 20090109
  Serious: Yes (Other)
  Sender: FDA-Public Use
  Company Number: US-ROCHE-574410

PATIENT
  Sex: Female
  Weight: 85.3 kg

DRUGS (6)
  1. CAPECITABINE [Suspect]
     Indication: GALLBLADDER CANCER
     Dosage: 2 TABLETS IN THE AM AND 2 TABLETS IN THE PM
     Route: 048
     Dates: start: 20080302, end: 20080527
  2. GEMZAR [Concomitant]
     Route: 042
  3. LYRICA [Concomitant]
     Indication: NEUROPATHY PERIPHERAL
  4. ATENOLOL [Concomitant]
     Indication: HYPERTENSION
  5. LASIX [Concomitant]
  6. ASPIRIN [Concomitant]

REACTIONS (1)
  - DISEASE PROGRESSION [None]
